FAERS Safety Report 10394943 (Version 5)
Quarter: 2014Q4

REPORT INFORMATION
  Report Type: Spontaneous
  Country: US (occurrence: US)
  Receive Date: 20140820
  Receipt Date: 20141223
  Transmission Date: 20150528
  Serious: Yes (Other)
  Sender: FDA-Public Use
  Company Number: US-AMGEN-USASP2014062829

PATIENT
  Age: 66 Year
  Sex: Female

DRUGS (1)
  1. ENBREL [Suspect]
     Active Substance: ETANERCEPT
     Indication: RHEUMATOID ARTHRITIS
     Dosage: 50 MG, QWK
     Route: 065
     Dates: start: 20120601, end: 20141102

REACTIONS (7)
  - Eye infection [Recovered/Resolved]
  - Lacrimation increased [Not Recovered/Not Resolved]
  - Eye irritation [Not Recovered/Not Resolved]
  - Sinusitis [Recovered/Resolved]
  - Dacryostenosis acquired [Not Recovered/Not Resolved]
  - Influenza like illness [Not Recovered/Not Resolved]
  - Neck pain [Not Recovered/Not Resolved]

NARRATIVE: CASE EVENT DATE: 201401
